FAERS Safety Report 12217007 (Version 1)
Quarter: 2016Q1

REPORT INFORMATION
  Report Type: Spontaneous
  Country: None (occurrence: None)
  Receive Date: 20160328
  Receipt Date: 20160328
  Transmission Date: 20160526
  Serious: Yes (Life-Threatening)
  Sender: FDA-Public Use
  Company Number: None

PATIENT
  Age: 39 Year
  Sex: Female
  Weight: 60.33 kg

DRUGS (1)
  1. MELOXICAM. [Suspect]
     Active Substance: MELOXICAM
     Indication: TENDON INJURY
     Dosage: IN THE MORNING TAKEN BY MOUTH
     Route: 048
     Dates: start: 20160304, end: 20160324

REACTIONS (4)
  - Suicidal ideation [None]
  - Withdrawal syndrome [None]
  - Depression [None]
  - Drug dose titration not performed [None]

NARRATIVE: CASE EVENT DATE: 20160325
